FAERS Safety Report 15726195 (Version 1)
Quarter: 2018Q4

REPORT INFORMATION
  Report Type: Spontaneous
  Country: US (occurrence: US)
  Receive Date: 20181216
  Receipt Date: 20181216
  Transmission Date: 20190205
  Serious: No
  Sender: FDA-Public Use
  Company Number: US-SUPERNUS PHARMACEUTICALS, INC.-2018SUP00097

PATIENT
  Age: 29 Year
  Sex: Female
  Weight: 107.94 kg

DRUGS (7)
  1. TROKENDI XR [Suspect]
     Active Substance: TOPIRAMATE
     Indication: EPILEPSY
     Dosage: 100 MG, 1X/DAY (TOTAL DOSE 300 MG)
     Route: 048
     Dates: start: 2016
  2. TROKENDI XR [Suspect]
     Active Substance: TOPIRAMATE
     Indication: BIPOLAR DISORDER
  3. TROKENDI XR [Suspect]
     Active Substance: TOPIRAMATE
     Indication: BIPOLAR DISORDER
  4. ETODOLAC (TARO) [Suspect]
     Active Substance: ETODOLAC
     Dosage: UNK
  5. UNSPECIFIED INJECTION [Suspect]
     Active Substance: UNSPECIFIED INGREDIENT
     Dosage: UNK
  6. TROKENDI XR [Suspect]
     Active Substance: TOPIRAMATE
     Indication: EPILEPSY
     Dosage: 200 MG, 1X/DAY (TOTAL DOSE 300 MG)
     Route: 048
     Dates: start: 2016
  7. IBUPROFEN (OTC) [Suspect]
     Active Substance: IBUPROFEN
     Dosage: UNK

REACTIONS (3)
  - Sinusitis [Not Recovered/Not Resolved]
  - Oral pain [Not Recovered/Not Resolved]
  - Tooth fracture [Recovered/Resolved]

NARRATIVE: CASE EVENT DATE: 201803
